FAERS Safety Report 5086019-9 (Version None)
Quarter: 2006Q3

REPORT INFORMATION
  Report Type: 
  Country: None (occurrence: None)
  Receive Date: 20060817
  Receipt Date: 20060807
  Transmission Date: 20061208
  Serious: Yes (Disabling, Other)
  Sender: FDA-Public Use
  Company Number: GXKR2006GB04531

PATIENT
  Age: 68 Year
  Sex: Male

DRUGS (5)
  1. ASPIRIN [Suspect]
     Indication: ANGINA PECTORIS
     Dosage: 75 MG, QD
  2. AMLODIPINE [Concomitant]
  3. ATENOLOL [Concomitant]
  4. ISOSORBIDE DINITRATE [Concomitant]
  5. SIMVASTATIN (SIMIVASTATIN) [Concomitant]

REACTIONS (5)
  - MACULOPATHY [None]
  - PROTHROMBIN TIME PROLONGED [None]
  - RETINAL HAEMORRHAGE [None]
  - SCOTOMA [None]
  - VISUAL ACUITY REDUCED [None]
